FAERS Safety Report 14482341 (Version 2)
Quarter: 2018Q2

REPORT INFORMATION
  Report Type: Spontaneous
  Country: GB (occurrence: GB)
  Receive Date: 20180202
  Receipt Date: 20180501
  Transmission Date: 20180711
  Serious: Yes (Death, Hospitalization)
  Sender: FDA-Public Use
  Company Number: GB-009507513-1801GBR014711

PATIENT
  Age: 58 Year
  Sex: Female
  Weight: 68 kg

DRUGS (15)
  1. OMEPRAZOLE SODIUM [Concomitant]
     Active Substance: OMEPRAZOLE SODIUM
  2. FLUCONAZOLE. [Concomitant]
     Active Substance: FLUCONAZOLE
  3. HYDROCORTISONE. [Concomitant]
     Active Substance: HYDROCORTISONE
  4. MYCOPHENOLATE MOFETIL. [Concomitant]
     Active Substance: MYCOPHENOLATE MOFETIL
  5. METHYLPREDNISOLONE. [Concomitant]
     Active Substance: METHYLPREDNISOLONE
  6. PEMBROLIZUMAB. [Suspect]
     Active Substance: PEMBROLIZUMAB
     Indication: ADRENOCORTICAL CARCINOMA
     Dosage: 125 MG, UNKNOWN
     Route: 042
     Dates: start: 20170914, end: 20171116
  7. METRONIDAZOLE. [Concomitant]
     Active Substance: METRONIDAZOLE
  8. HALOPERIDOL. [Concomitant]
     Active Substance: HALOPERIDOL
  9. METYRAPONE [Concomitant]
     Active Substance: METYRAPONE
  10. MITOTANE [Concomitant]
     Active Substance: MITOTANE
  11. CYCLIZINE [Concomitant]
     Active Substance: CYCLIZINE
  12. VANCOMYCIN [Concomitant]
     Active Substance: VANCOMYCIN
  13. DALTEPARIN SODIUM [Concomitant]
     Active Substance: DALTEPARIN SODIUM
  14. MORPHINE SULFATE. [Concomitant]
     Active Substance: MORPHINE SULFATE
  15. CIPROFLOXACIN HYDROCHLORIDE. [Concomitant]
     Active Substance: CIPROFLOXACIN HYDROCHLORIDE

REACTIONS (4)
  - Condition aggravated [Fatal]
  - Liver function test abnormal [Not Recovered/Not Resolved]
  - Coagulopathy [Not Recovered/Not Resolved]
  - Jaundice [Not Recovered/Not Resolved]

NARRATIVE: CASE EVENT DATE: 20180111
